FAERS Safety Report 19155187 (Version 2)
Quarter: 2021Q2

REPORT INFORMATION
  Report Type: Report from Study
  Country: US (occurrence: US)
  Receive Date: 20210420
  Receipt Date: 20210617
  Transmission Date: 20210717
  Serious: No
  Sender: FDA-Public Use
  Company Number: US-TAKEDA-2021TUS024106

PATIENT
  Age: 25 Year
  Sex: Male

DRUGS (10)
  1. PONATINIB [Suspect]
     Active Substance: PONATINIB
     Indication: MYELOPROLIFERATIVE NEOPLASM
     Dosage: 30 MILLIGRAM, QD
     Route: 048
     Dates: start: 20210414
  2. NYSTATIN. [Concomitant]
     Active Substance: NYSTATIN
     Dosage: UNK
     Route: 065
  3. PENTAMIDINE [Concomitant]
     Active Substance: PENTAMIDINE
     Dosage: UNK
     Route: 065
  4. AMINOCAPROIC ACID. [Concomitant]
     Active Substance: AMINOCAPROIC ACID
     Dosage: UNK
     Route: 065
  5. FAMOTIDINE. [Concomitant]
     Active Substance: FAMOTIDINE
     Dosage: UNK
     Route: 065
  6. URSODIOL. [Concomitant]
     Active Substance: URSODIOL
     Dosage: UNK
     Route: 065
  7. SODIUM BICARBONATE. [Concomitant]
     Active Substance: SODIUM BICARBONATE
     Dosage: UNK
     Route: 065
  8. ACYCLOVIR. [Concomitant]
     Active Substance: ACYCLOVIR
     Dosage: UNK
     Route: 065
  9. LEVOFLOXACIN. [Concomitant]
     Active Substance: LEVOFLOXACIN
     Dosage: UNK
     Route: 065
  10. PONATINIB [Suspect]
     Active Substance: PONATINIB
     Indication: ACUTE LEUKAEMIA

REACTIONS (2)
  - No adverse event [Unknown]
  - Off label use [Unknown]

NARRATIVE: CASE EVENT DATE: 20210414
